FAERS Safety Report 8367979-7 (Version None)
Quarter: 2012Q2

REPORT INFORMATION
  Report Type: 
  Country: None (occurrence: None)
  Receive Date: 20120517
  Receipt Date: 20120509
  Transmission Date: 20120825
  Serious: Yes (Hospitalization, Other)
  Sender: FDA-Public Use
  Company Number: US-ROCHE-788892

PATIENT
  Sex: Male
  Weight: 72.64 kg

DRUGS (1)
  1. ACCUTANE [Suspect]
     Indication: ACNE
     Route: 065
     Dates: start: 19880101, end: 19890101

REACTIONS (5)
  - PERIRECTAL ABSCESS [None]
  - EMOTIONAL DISTRESS [None]
  - SMALL INTESTINAL OBSTRUCTION [None]
  - CROHN'S DISEASE [None]
  - INFLAMMATORY BOWEL DISEASE [None]
